FAERS Safety Report 18479029 (Version 8)
Quarter: 2021Q3

REPORT INFORMATION
  Report Type: Report from Study
  Country: US (occurrence: US)
  Receive Date: 20201109
  Receipt Date: 20210907
  Transmission Date: 20211014
  Serious: Yes (Hospitalization)
  Sender: FDA-Public Use
  Company Number: US-B.I. PHARMACEUTICALS,INC./RIDGEFIELD-2020-BI-060319

PATIENT
  Age: 39 Year
  Sex: Female

DRUGS (3)
  1. OFEV [Suspect]
     Active Substance: NINTEDANIB
     Indication: SYSTEMIC SCLERODERMA
  2. OFEV [Suspect]
     Active Substance: NINTEDANIB
     Indication: INTERSTITIAL LUNG DISEASE
  3. OFEV [Suspect]
     Active Substance: NINTEDANIB
     Indication: PULMONARY FIBROSIS
     Dosage: TAKE ONE BY MOUTH TWICE DAILY
     Route: 048
     Dates: start: 20201028

REACTIONS (8)
  - Diarrhoea [Unknown]
  - Chills [Unknown]
  - Diarrhoea [Recovered/Resolved]
  - Pyrexia [Unknown]
  - Illness [Unknown]
  - Nausea [Not Recovered/Not Resolved]
  - COVID-19 [Not Recovered/Not Resolved]
  - Weight decreased [Unknown]

NARRATIVE: CASE EVENT DATE: 202010
